FAERS Safety Report 4778497-7 (Version None)
Quarter: 2005Q3

REPORT INFORMATION
  Report Type: 
  Country: None (occurrence: None)
  Receive Date: 20050922
  Receipt Date: 20050912
  Transmission Date: 20060218
  Serious: Yes (Other)
  Sender: FDA-Public Use
  Company Number: 2005126947

PATIENT
  Sex: Female

DRUGS (2)
  1. NORVASC [Suspect]
     Indication: ILL-DEFINED DISORDER
  2. LIPITOR [Suspect]
     Indication: ILL-DEFINED DISORDER

REACTIONS (1)
  - CARDIAC PACEMAKER INSERTION [None]
